FAERS Safety Report 15609991 (Version 1)
Quarter: 2018Q4

REPORT INFORMATION
  Report Type: Spontaneous
  Country: DK (occurrence: DK)
  Receive Date: 20181113
  Receipt Date: 20181113
  Transmission Date: 20190205
  Serious: Yes (Other)
  Sender: FDA-Public Use
  Company Number: DK-MACLEODS PHARMACEUTICALS US LTD-MAC2018018593

PATIENT

DRUGS (18)
  1. SODIUM CHLORIDE. [Concomitant]
     Active Substance: SODIUM CHLORIDE
     Indication: PRODUCT USED FOR UNKNOWN INDICATION
     Dosage: 2000 ML OF 3% SODIUM CHLORIDE
     Route: 065
  2. ESCITALOPRAM OXALATE. [Suspect]
     Active Substance: ESCITALOPRAM OXALATE
     Indication: DEPRESSION
     Dosage: 40 MILLIGRAM, QD
     Route: 065
  3. 6-MERCAPTOPURINE [Concomitant]
     Active Substance: MERCAPTOPURINE
     Indication: CROHN^S DISEASE
     Dosage: UNK
     Route: 065
  4. LOPERAMIDE [Concomitant]
     Active Substance: LOPERAMIDE
     Indication: BILE ACID MALABSORPTION
     Dosage: UNK, 2-8 MILLIGRAM QD
     Route: 065
  5. LEVETIRACETAM. [Concomitant]
     Active Substance: LEVETIRACETAM
     Indication: DEPRESSION
     Dosage: UNK
     Route: 065
  6. OCTREOTIDE. [Concomitant]
     Active Substance: OCTREOTIDE
     Indication: DIARRHOEA
     Dosage: UNK
     Route: 065
  7. LIRAGLUTIDE [Concomitant]
     Active Substance: LIRAGLUTIDE
     Indication: DIARRHOEA
     Dosage: UNK
     Route: 065
  8. COLESEVELAM [Concomitant]
     Active Substance: COLESEVELAM
     Indication: BILE ACID MALABSORPTION
     Dosage: 625 MILLIGRAM, TID
     Route: 065
  9. INFLIXIMAB [Concomitant]
     Active Substance: INFLIXIMAB
     Indication: CROHN^S DISEASE
     Dosage: UNK
     Route: 065
  10. NATALIZUMAB [Concomitant]
     Active Substance: NATALIZUMAB
     Indication: CROHN^S DISEASE
     Dosage: UNK
     Route: 065
  11. VENLAFAXINE [Suspect]
     Active Substance: VENLAFAXINE HYDROCHLORIDE
     Indication: DEPRESSION
     Dosage: 225 MILLIGRAM, QD
     Route: 065
  12. ADALIMUMAB [Concomitant]
     Active Substance: ADALIMUMAB
     Indication: CROHN^S DISEASE
  13. VEDOLIZUMAB [Concomitant]
     Active Substance: VEDOLIZUMAB
     Indication: CROHN^S DISEASE
     Dosage: UNK
     Route: 065
  14. SPIRONOLACTONE. [Concomitant]
     Active Substance: SPIRONOLACTONE
     Indication: DIARRHOEA
     Dosage: UNK
     Route: 065
  15. IBUPROFEN. [Concomitant]
     Active Substance: IBUPROFEN
     Indication: PRODUCT USED FOR UNKNOWN INDICATION
     Dosage: 400 MILLIGRAM
     Route: 065
  16. LAMOTRIGINE. [Concomitant]
     Active Substance: LAMOTRIGINE
     Indication: EPILEPSY
     Dosage: 400 MILLIGRAM, QD
     Route: 065
  17. VANCOMYCIN [Concomitant]
     Active Substance: VANCOMYCIN
     Indication: DIARRHOEA
     Dosage: 125 MILLIGRAM  FOUR TIMES PER DAY
     Route: 065
  18. POTASSIUM [Concomitant]
     Active Substance: POTASSIUM
     Indication: DEHYDRATION
     Dosage: 100 MILLIMOLE
     Route: 065

REACTIONS (1)
  - Bile acid malabsorption [Unknown]
